FAERS Safety Report 4496545-9 (Version None)
Quarter: 2004Q4

REPORT INFORMATION
  Report Type: 
  Country: None (occurrence: None)
  Receive Date: 20041109
  Receipt Date: 20041029
  Transmission Date: 20050328
  Serious: Yes (Congenital Anomaly, Other)
  Sender: FDA-Public Use
  Company Number: GB-BRISTOL-MYERS SQUIBB COMPANY-12755732

PATIENT

DRUGS (2)
  1. METFORMIN HCL [Suspect]
     Route: 064
     Dates: start: 20040401
  2. CLOMIPHENE [Concomitant]
     Route: 064
     Dates: start: 20040101, end: 20040401

REACTIONS (2)
  - ANENCEPHALY [None]
  - PREGNANCY [None]
